FAERS Safety Report 11564635 (Version 1)
Quarter: 2015Q3

REPORT INFORMATION
  Report Type: Spontaneous
  Country: US (occurrence: US)
  Receive Date: 20150916
  Receipt Date: 20150916
  Transmission Date: 20151125
  Serious: No
  Sender: FDA-Public Use
  Company Number: US-ELI_LILLY_AND_COMPANY-US200903006459

PATIENT
  Age: 47 Year
  Sex: Female

DRUGS (9)
  1. ALBUTEROL. [Concomitant]
     Active Substance: ALBUTEROL
  2. ASPIRIN. [Concomitant]
     Active Substance: ASPIRIN
  3. FORTEO [Suspect]
     Active Substance: TERIPARATIDE
     Dates: start: 2007
  4. LANTUS [Concomitant]
     Active Substance: INSULIN GLARGINE
  5. LORATADINE. [Concomitant]
     Active Substance: LORATADINE
  6. CITRACAL [Concomitant]
     Active Substance: CALCIUM CITRATE
  7. LISINOPRIL. [Concomitant]
     Active Substance: LISINOPRIL
  8. PREVACID [Concomitant]
     Active Substance: LANSOPRAZOLE
  9. XANAX [Concomitant]
     Active Substance: ALPRAZOLAM

REACTIONS (1)
  - Bone density decreased [Not Recovered/Not Resolved]
